FAERS Safety Report 9647533 (Version 1)
Quarter: 2013Q4

REPORT INFORMATION
  Report Type: Spontaneous
  Country: US (occurrence: US)
  Receive Date: 20131028
  Receipt Date: 20131028
  Transmission Date: 20140711
  Serious: No
  Sender: FDA-Public Use
  Company Number: US-009507513-1310USA009151

PATIENT
  Sex: 0

DRUGS (3)
  1. EMEND [Suspect]
     Dosage: UNK
     Route: 048
  2. CARBOPLATIN [Concomitant]
  3. THERAPEUTIC RADIOPHARMACEUTICAL (UNSPECIFIED) [Concomitant]

REACTIONS (2)
  - Drug ineffective [Unknown]
  - Inappropriate schedule of drug administration [Unknown]
